FAERS Safety Report 16568850 (Version 1)
Quarter: 2019Q3

REPORT INFORMATION
  Report Type: Spontaneous
  Country: DE (occurrence: DE)
  Receive Date: 20190713
  Receipt Date: 20190713
  Transmission Date: 20191004
  Serious: Yes (Hospitalization)
  Sender: FDA-Public Use
  Company Number: DE-TEVA-2019-DE-1076588

PATIENT
  Age: 73 Year
  Sex: Male
  Weight: 81 kg

DRUGS (15)
  1. ZOPICLON [Concomitant]
     Active Substance: ZOPICLONE
     Dosage: 7.5 MG, NEED, TABLETS
     Route: 048
  2. TORASEMID [Concomitant]
     Active Substance: TORSEMIDE
     Dosage: 50 MG, 1-0-0-0, TABLETS
     Route: 048
  3. AMLODIPIN [Concomitant]
     Active Substance: AMLODIPINE BESYLATE
     Dosage: 10 MG, 1-0-0-0, TABLETS
     Route: 048
  4. PANTOZOL [Concomitant]
     Active Substance: PANTOPRAZOLE SODIUM
     Dosage: NEED, TABLETS
     Route: 048
  5. ARANESP 60MIKROGRAMM [Concomitant]
     Dosage: 60 MICROGRAMS / WEEK, SCHEME, PRE-FILLED SYRINGES
     Route: 058
  6. MYFORTIC [Suspect]
     Active Substance: MYCOPHENOLATE SODIUM
     Dosage: 360 MG, 1-0-1-0, TABLETS
     Route: 048
  7. ALLOPURINOL 300 HEUMANN [Concomitant]
     Dosage: 300 MG, 0.5-0-0-0, TABLETS, 300 HEUMANN
     Route: 048
  8. MONO-EMBOLEX 3000I.E. PROPHYLAXE SICHERHEITSSPRITZE [Concomitant]
     Dosage: 3000 IU EVERY 2ND DAY, SCHEME, PRE-FILLED SYRINGES, PROPHYLAXIS SAFETY SYRINGE
     Route: 058
  9. PRAVASTATIN. [Concomitant]
     Active Substance: PRAVASTATIN
     Dosage: 20 MG, 0-0-1-0, TABLETS
     Route: 048
  10. PREDNISOLON RATIOPHARM [Suspect]
     Active Substance: PREDNISOLONE
     Dosage: 5 MG, 1-0-0-0, TABLETS
     Route: 048
  11. ADVAGRAF 1MG [Suspect]
     Active Substance: TACROLIMUS
     Dosage: 1 MG, 2-0-0-0, CAPSULES
     Route: 048
  12. ASS AL 100 TAH [Concomitant]
     Dosage: 100 MG, 1-0-0-0, TABLETS
     Route: 048
  13. MIMPARA 30MG [Concomitant]
     Dosage: 30 MG, 0-0-1-0, TABLETS
     Route: 048
  14. ADVAGRAF 0,5MG [Suspect]
     Active Substance: TACROLIMUS
     Dosage: 0.5 MG, 0-0-1-0, CAPSULES
     Route: 048
  15. BELOC-ZOK 95MG [Concomitant]
     Dosage: 95 MG, 1-0-0-0, RETARD TABLETS
     Route: 048

REACTIONS (2)
  - Tremor [Unknown]
  - Inflammation [Unknown]
